FAERS Safety Report 10527131 (Version 3)
Quarter: 2014Q4

REPORT INFORMATION
  Report Type: Report from Study
  Country: CA (occurrence: CA)
  Receive Date: 20141020
  Receipt Date: 20141127
  Transmission Date: 20150528
  Serious: Yes (Hospitalization)
  Sender: FDA-Public Use
  Company Number: CA-UCBSA-2014012970

PATIENT
  Age: 53 Year
  Sex: Female
  Weight: 73 kg

DRUGS (4)
  1. CERTOLIZUMAB PEGOL RA [Suspect]
     Active Substance: CERTOLIZUMAB PEGOL
     Dosage: 200 MG, 2X/WEEK
     Route: 058
     Dates: start: 20140707, end: 20140828
  2. CERTOLIZUMAB PEGOL RA [Suspect]
     Active Substance: CERTOLIZUMAB PEGOL
     Dosage: 200 MG, 3X/WEEK
     Route: 058
     Dates: start: 20130731, end: 20131023
  3. CERTOLIZUMAB PEGOL RA [Suspect]
     Active Substance: CERTOLIZUMAB PEGOL
     Indication: RHEUMATOID ARTHRITIS
     Dosage: 400 MG, AT 0,2 AND 4 WEEKS
     Route: 058
     Dates: start: 20100514, end: 20100611
  4. CERTOLIZUMAB PEGOL RA [Suspect]
     Active Substance: CERTOLIZUMAB PEGOL
     Dosage: 200 MG, 2X/WEEK
     Route: 058
     Dates: start: 20100625, end: 20130507

REACTIONS (3)
  - Diverticulum [Recovering/Resolving]
  - Off label use [Unknown]
  - Diarrhoea [Not Recovered/Not Resolved]

NARRATIVE: CASE EVENT DATE: 20130731
